FAERS Safety Report 5686286-4 (Version None)
Quarter: 2008Q1

REPORT INFORMATION
  Report Type: 
  Country: None (occurrence: None)
  Receive Date: 20080328
  Receipt Date: 20070803
  Transmission Date: 20080703
  Serious: No
  Sender: FDA-Public Use
  Company Number: US-BAYER-US-2007-029373

PATIENT
  Age: 29 Year
  Sex: Female

DRUGS (1)
  1. MIRENA [Suspect]
     Indication: CONTRACEPTION
     Route: 015
     Dates: start: 19620601, end: 20070801

REACTIONS (4)
  - DISCOMFORT [None]
  - DYSPAREUNIA [None]
  - METRORRHAGIA [None]
  - UTERINE PAIN [None]
